FAERS Safety Report 26136701 (Version 1)
Quarter: 2025Q4

REPORT INFORMATION
  Report Type: Spontaneous
  Country: US (occurrence: None)
  Receive Date: 20251209
  Receipt Date: 20251209
  Transmission Date: 20260117
  Serious: Yes (unspecified)
  Sender: FDA-CTU
  Company Number: None

PATIENT
  Age: 60 Year
  Sex: Male
  Weight: 140 kg

DRUGS (1)
  1. LUMASON [Suspect]
     Active Substance: SULFUR HEXAFLUORIDE
     Indication: Echocardiogram
     Dosage: 2 ML
     Dates: start: 20251204, end: 20251204

REACTIONS (4)
  - Feeling hot [None]
  - Flushing [None]
  - Chest pain [None]
  - Contrast media reaction [None]

NARRATIVE: CASE EVENT DATE: 20251204
